FAERS Safety Report 9740413 (Version 1)
Quarter: 2013Q4

REPORT INFORMATION
  Report Type: Report from Study
  Country: JP (occurrence: JP)
  Receive Date: 20131209
  Receipt Date: 20131209
  Transmission Date: 20140711
  Serious: Yes (Death)
  Sender: FDA-Public Use
  Company Number: JP-TAKEDA-2013TUS003009

PATIENT
  Age: 88 Year
  Sex: Male
  Weight: 55 kg

DRUGS (11)
  1. FEBURIC [Suspect]
     Indication: HYPERURICAEMIA
     Dosage: 20 MG, QD
     Route: 048
     Dates: start: 20120904, end: 20121221
  2. FEBURIC [Suspect]
     Dosage: 10 MG, QD
     Route: 048
     Dates: start: 20121222, end: 20130315
  3. PRAZAXA [Suspect]
     Route: 048
  4. SIGMART [Concomitant]
     Indication: ANGINA PECTORIS
     Dosage: 15 MG, QD
     Route: 048
     Dates: start: 20091130, end: 20130315
  5. ADALAT L [Concomitant]
     Indication: HYPERTENSION
     Dosage: 80 MG, QD
     Route: 048
     Dates: start: 20091130, end: 20130315
  6. MYSLEE [Concomitant]
     Indication: INSOMNIA
     Dosage: 10 MG, QD
     Route: 048
     Dates: start: 20091130, end: 20130315
  7. FEROTYM [Concomitant]
     Indication: ANAEMIA
     Dosage: 50 MG, QD
     Route: 048
     Dates: start: 20091130, end: 20130315
  8. RASILEZ [Concomitant]
     Indication: HYPERTENSION
     Dosage: 150 MG, QD
     Route: 048
     Dates: start: 20110418, end: 20130315
  9. SAMSCA [Concomitant]
     Indication: CARDIAC FAILURE
     Dosage: 15 MG, QD
     Route: 048
     Dates: start: 20120811, end: 20130315
  10. LASIX                              /00032601/ [Concomitant]
     Indication: CARDIAC FAILURE
     Dosage: 40 MG, QD
     Route: 048
     Dates: start: 20120830, end: 20130315
  11. THYRADIN S [Concomitant]
     Indication: HYPOTHYROIDISM
     Dosage: 50 MG, QD
     Route: 048
     Dates: start: 20080321, end: 20130315

REACTIONS (1)
  - Pulmonary haemorrhage [Fatal]
